FAERS Safety Report 6112470-1 (Version None)
Quarter: 2009Q1

REPORT INFORMATION
  Report Type: 
  Country: None (occurrence: None)
  Receive Date: 20090312
  Receipt Date: 20090309
  Transmission Date: 20090719
  Serious: No
  Sender: FDA-Public Use
  Company Number: US-JNJFOC-20090302349

PATIENT
  Sex: Female
  Weight: 62.6 kg

DRUGS (1)
  1. DURAGESIC-100 [Suspect]
     Indication: FIBROMYALGIA
     Route: 062

REACTIONS (4)
  - DRUG DOSE OMISSION [None]
  - PAIN [None]
  - TREMOR [None]
  - WITHDRAWAL SYNDROME [None]
